FAERS Safety Report 25528693 (Version 2)
Quarter: 2025Q3

REPORT INFORMATION
  Report Type: Report from Study
  Country: US (occurrence: US)
  Receive Date: 20250708
  Receipt Date: 20250801
  Transmission Date: 20251020
  Serious: Yes (Hospitalization)
  Sender: NOVARTIS
  Company Number: US-002147023-NVSC2025US107099

PATIENT
  Age: 61 Year
  Sex: Male

DRUGS (1)
  1. VANRAFIA [Suspect]
     Active Substance: ATRASENTAN HYDROCHLORIDE
     Indication: Product used for unknown indication
     Dosage: 0.75 MG, QD
     Route: 048

REACTIONS (6)
  - Erythema [Recovered/Resolved]
  - Swelling [Recovered/Resolved]
  - Eye pruritus [Recovered/Resolved]
  - Eating disorder [Recovered/Resolved]
  - Nausea [Recovered/Resolved]
  - Vomiting [Recovered/Resolved]

NARRATIVE: CASE EVENT DATE: 20250629
